FAERS Safety Report 25468041 (Version 1)
Quarter: 2025Q2

REPORT INFORMATION
  Report Type: Spontaneous
  Country: US (occurrence: US)
  Receive Date: 20250623
  Receipt Date: 20250623
  Transmission Date: 20250716
  Serious: Yes (Death, Life-Threatening, Hospitalization, Disabling)
  Sender: PFIZER
  Company Number: US-PFIZER INC-202500125731

PATIENT
  Age: 27 Year
  Sex: Female

DRUGS (1)
  1. DEPO-PROVERA [Suspect]
     Active Substance: MEDROXYPROGESTERONE ACETATE

REACTIONS (2)
  - Cervix carcinoma [Fatal]
  - Cervix cancer metastatic [Fatal]

NARRATIVE: CASE EVENT DATE: 20180101
